FAERS Safety Report 8270748-X (Version None)
Quarter: 2012Q2

REPORT INFORMATION
  Report Type: 
  Country: None (occurrence: None)
  Receive Date: 20120410
  Receipt Date: 20120402
  Transmission Date: 20120825
  Serious: Yes (Hospitalization, Other)
  Sender: FDA-Public Use
  Company Number: US-BAYER-2011-080658

PATIENT
  Age: 29 Year
  Sex: Female
  Weight: 70.295 kg

DRUGS (11)
  1. DROSPIRENONE AND ETHINYL ESTRADIOL [Suspect]
     Indication: CONTRACEPTION
     Dosage: UNK
     Dates: start: 20080101, end: 20090101
  2. TOPROL-XL [Concomitant]
  3. ALBUTEROL [Concomitant]
     Dosage: UNK
     Dates: start: 20060101, end: 20100101
  4. MIRTAZAPINE [Concomitant]
     Indication: DEPRESSION
  5. TRAZODONE HCL [Concomitant]
     Indication: ANXIETY
  6. MIRTAZAPINE [Concomitant]
     Indication: ANXIETY
  7. NSAID'S [Concomitant]
  8. METOPROLOL TARTRATE [Concomitant]
     Indication: VENTRICULAR EXTRASYSTOLES
  9. YASMIN [Suspect]
     Indication: CONTRACEPTION
     Dosage: UNK
     Dates: start: 20060101, end: 20080101
  10. HEART MEDICATION (NOS) [Concomitant]
     Dosage: UNK
     Dates: start: 20040101, end: 20100101
  11. ZYRTEC [Concomitant]
     Indication: MULTIPLE ALLERGIES

REACTIONS (8)
  - GALLBLADDER DISORDER [None]
  - GENERAL PHYSICAL HEALTH DETERIORATION [None]
  - ANXIETY [None]
  - CHOLECYSTITIS CHRONIC [None]
  - EMOTIONAL DISTRESS [None]
  - NAUSEA [None]
  - PAIN [None]
  - ABDOMINAL PAIN [None]
